FAERS Safety Report 8967788 (Version 2)
Quarter: 2013Q1

REPORT INFORMATION
  Report Type: Spontaneous
  Country: US (occurrence: US)
  Receive Date: 20121217
  Receipt Date: 20130111
  Transmission Date: 20140127
  Serious: Yes (Other)
  Sender: FDA-Public Use
  Company Number: US-MERCK-1212USA003388

PATIENT
  Age: 77 Year
  Sex: Male

DRUGS (13)
  1. DEXAMETHASONE SODIUM PHOSPHATE [Suspect]
     Dosage: UNK, QM3 WHEN ZOMETA WAS GIVEN
  2. CELEBREX [Suspect]
     Indication: PROSTATE CANCER
     Dosage: 400 MG, QD
     Route: 048
     Dates: start: 2003, end: 20121024
  3. LIPITOR [Suspect]
  4. SIMVASTATIN [Concomitant]
     Dosage: 1 DF, QD
     Route: 048
     Dates: start: 20100901
  5. ASPIRIN [Concomitant]
     Dosage: 1 DF, QD
     Route: 048
     Dates: start: 20070212
  6. LISINOPRIL [Concomitant]
     Dosage: 1 DF, QD
     Route: 048
     Dates: start: 20090601
  7. FEMARA [Concomitant]
     Dosage: 1 DF, QOD
     Route: 048
     Dates: start: 20120822
  8. VITAMIN D (UNSPECIFIED) [Concomitant]
     Dosage: UNK, QD
     Route: 048
     Dates: start: 20070212
  9. CALCIUM CITRATE [Concomitant]
     Dosage: 1 DF, QD
     Route: 048
     Dates: start: 20100901
  10. ZOMETA [Concomitant]
     Dosage: EVERY THREE MONTHS
     Route: 042
     Dates: start: 20070212
  11. SYNTHROID [Concomitant]
     Dosage: 1 DF, QD
     Route: 048
     Dates: start: 20061018
  12. CASODEX [Concomitant]
     Dosage: 3 DF, QD
     Route: 048
     Dates: start: 20120530
  13. AVODART [Concomitant]
     Dosage: 1 DF, QD
     Route: 048
     Dates: start: 20100303, end: 20121106

REACTIONS (3)
  - Sudden hearing loss [Not Recovered/Not Resolved]
  - Drug ineffective [Unknown]
  - Speech disorder [Recovered/Resolved]
